FAERS Safety Report 6025699-8 (Version None)
Quarter: 2008Q4

REPORT INFORMATION
  Report Type: 
  Country: None (occurrence: None)
  Receive Date: 20081231
  Receipt Date: 20081224
  Transmission Date: 20090506
  Serious: Yes (Other)
  Sender: FDA-Public Use
  Company Number: DE-ABBOTT-08P-062-0494654-00

PATIENT
  Age: 79 Year
  Sex: Male

DRUGS (5)
  1. ERGENYL CHRONOSPHERE [Suspect]
     Indication: EPILEPSY
     Route: 048
  2. ERGENYL CHRONOSPHERE [Suspect]
     Route: 048
  3. ERGENYL CHRONOSPHERE [Suspect]
     Route: 048
  4. RISPERIDONE [Concomitant]
     Indication: DRUG USE FOR UNKNOWN INDICATION
     Route: 065
  5. CITALOPRAM [Concomitant]
     Indication: DRUG USE FOR UNKNOWN INDICATION
     Route: 065

REACTIONS (5)
  - CONVULSION [None]
  - FATIGUE [None]
  - HEMIPARESIS [None]
  - SALIVARY HYPERSECRETION [None]
  - SOMNOLENCE [None]
